FAERS Safety Report 24776203 (Version 1)
Quarter: 2024Q4

REPORT INFORMATION
  Report Type: Spontaneous
  Country: LV (occurrence: LV)
  Receive Date: 20241226
  Receipt Date: 20241226
  Transmission Date: 20250115
  Serious: Yes (Hospitalization)
  Sender: STRIDES
  Company Number: LV-STRIDES ARCOLAB LIMITED-2024SP016917

PATIENT
  Age: 60 Year
  Sex: Male

DRUGS (1)
  1. DICLOFENAC [Suspect]
     Active Substance: DICLOFENAC
     Indication: Osteoarthritis
     Dosage: UNK, QD (150-300?MG/DAY)
     Route: 065

REACTIONS (4)
  - Glomerulonephritis minimal lesion [Recovered/Resolved]
  - Renal tubular necrosis [Recovered/Resolved]
  - Nephrotic syndrome [Recovered/Resolved]
  - Acute kidney injury [Recovered/Resolved]
